FAERS Safety Report 18765583 (Version 2)
Quarter: 2021Q1

REPORT INFORMATION
  Report Type: Spontaneous
  Country: RS (occurrence: RS)
  Receive Date: 20210121
  Receipt Date: 20210121
  Transmission Date: 20210419
  Serious: Yes (Hospitalization, Other)
  Sender: FDA-Public Use
  Company Number: RS-SUN PHARMACEUTICAL INDUSTRIES LTD-2021RR-276571

PATIENT
  Age: 60 Year
  Sex: Female

DRUGS (2)
  1. ZOLEDRONIC ACID [Suspect]
     Active Substance: ZOLEDRONIC ACID
     Indication: OSTEOPOROTIC FRACTURE
     Dosage: 5 MILLIGRAM, ONCE A YEAR
     Route: 051
  2. ALENDRONIC ACID [Suspect]
     Active Substance: ALENDRONIC ACID
     Indication: OSTEOPOROTIC FRACTURE
     Dosage: 70 MILLIGRAM, WEEKLY
     Route: 065

REACTIONS (3)
  - Humerus fracture [Recovering/Resolving]
  - Wrist fracture [Recovering/Resolving]
  - Spinal fracture [Recovering/Resolving]
